FAERS Safety Report 13602573 (Version 2)
Quarter: 2017Q4

REPORT INFORMATION
  Report Type: Spontaneous
  Country: CA (occurrence: CA)
  Receive Date: 20170601
  Receipt Date: 20171127
  Transmission Date: 20180320
  Serious: Yes (Death)
  Sender: FDA-Public Use
  Company Number: CA-PFIZER INC-2017190145

PATIENT
  Age: 69 Year
  Sex: Female

DRUGS (1)
  1. RAPAMUNE [Suspect]
     Active Substance: SIROLIMUS
     Indication: HEPATIC NEOPLASM
     Dosage: 1 MG, 2X/DAY

REACTIONS (3)
  - Product use in unapproved indication [Unknown]
  - Death [Fatal]
  - Drug dispensing error [Unknown]

NARRATIVE: CASE EVENT DATE: 20170514
